FAERS Safety Report 8334449-1 (Version None)
Quarter: 2012Q2

REPORT INFORMATION
  Report Type: 
  Country: None (occurrence: None)
  Receive Date: 20120503
  Receipt Date: 20120419
  Transmission Date: 20120825
  Serious: Yes (Death)
  Sender: FDA-Public Use
  Company Number: FR-PFIZER INC-2012103474

PATIENT
  Age: 50 Year
  Sex: Male

DRUGS (7)
  1. NELFINAVIR MESYLATE [Suspect]
  2. DIDANOSINE [Suspect]
     Dosage: 400 MG, 1X/DAY
  3. DIDANOSINE [Suspect]
     Dosage: 250 MG/DAY
  4. ZIDOVUDINE [Suspect]
     Dosage: 300 MG, 2X/DAY
  5. EFAVIRENZ [Suspect]
  6. NEVIRAPINE [Suspect]
  7. LOPINAVIR [Suspect]

REACTIONS (1)
  - TOXICITY TO VARIOUS AGENTS [None]
